FAERS Safety Report 8708269 (Version 2)
Quarter: 2012Q4

REPORT INFORMATION
  Report Type: 
  Country: US (occurrence: US)
  Receive Date: 20120806
  Receipt Date: 20120828
  Transmission Date: 20130627
  Serious: No
  Sender: FDA-Public Use
  Company Number: US-JNJFOC-20120712665

PATIENT
  Age: 51 Year
  Sex: Female
  Weight: 39.01 kg

DRUGS (3)
  1. DURAGESIC [Suspect]
     Indication: BACK PAIN
     Route: 062
     Dates: start: 20070401
  2. CYMBALTA [Concomitant]
     Indication: DEPRESSION
     Route: 065
     Dates: start: 2012
  3. PROZAC [Concomitant]
     Indication: DEPRESSION
     Route: 065
     Dates: end: 2012

REACTIONS (3)
  - Panic attack [Unknown]
  - Drug dose omission [Recovered/Resolved]
  - Product quality issue [Unknown]
